FAERS Safety Report 8935904 (Version 3)
Quarter: 2013Q1

REPORT INFORMATION
  Report Type: Spontaneous
  Country: US (occurrence: US)
  Receive Date: 20121130
  Receipt Date: 20130131
  Transmission Date: 20140127
  Serious: Yes (Other)
  Sender: FDA-Public Use
  Company Number: US-MERCK-2012SP018640

PATIENT
  Age: 59 Year
  Sex: Male

DRUGS (5)
  1. VICTRELIS [Suspect]
     Indication: HEPATITIS C
     Dosage: 200 MG, QID
     Route: 048
     Dates: start: 20111207, end: 20120218
  2. PEG-INTRON [Suspect]
     Dosage: 150 MICROGRAM, QW
     Dates: start: 20111109
  3. REBETOL [Suspect]
     Dosage: 1400 MG, QD
     Route: 048
     Dates: start: 20111109
  4. BENICAR [Concomitant]
  5. ASPIRIN [Concomitant]
     Dosage: 325 MG, UNK

REACTIONS (11)
  - Cerebrovascular accident [Recovering/Resolving]
  - Speech disorder [Recovering/Resolving]
  - Dysphagia [Recovering/Resolving]
  - Pharyngeal ulceration [Recovering/Resolving]
  - Gout [Not Recovered/Not Resolved]
  - Muscular weakness [Not Recovered/Not Resolved]
  - Drug hypersensitivity [Recovering/Resolving]
  - Inappropriate schedule of drug administration [Unknown]
  - Burning sensation [Not Recovered/Not Resolved]
  - Oedema peripheral [Not Recovered/Not Resolved]
  - Skin mass [Not Recovered/Not Resolved]
